FAERS Safety Report 5208993-X (Version None)
Quarter: 2007Q1

REPORT INFORMATION
  Report Type: 
  Country: None (occurrence: None)
  Receive Date: 20070116
  Receipt Date: 20070115
  Transmission Date: 20070707
  Serious: Yes (Hospitalization)
  Sender: FDA-Public Use
  Company Number: JP-JPN-A200700032

PATIENT
  Age: 87 Year
  Sex: Male

DRUGS (3)
  1. VALTREX [Suspect]
     Indication: HERPES ZOSTER
     Dosage: 1000MG THREE TIMES PER DAY
     Route: 048
     Dates: start: 20061221, end: 20061226
  2. LOXONIN [Concomitant]
     Route: 065
  3. SELBEX [Concomitant]
     Route: 048

REACTIONS (3)
  - DIZZINESS [None]
  - DYSARTHRIA [None]
  - DYSLALIA [None]
